FAERS Safety Report 22606764 (Version 1)
Quarter: 2023Q2

REPORT INFORMATION
  Report Type: Spontaneous
  Country: US (occurrence: US)
  Receive Date: 20230615
  Receipt Date: 20230615
  Transmission Date: 20230722
  Serious: No
  Sender: FDA-Public Use
  Company Number: US-KARYOPHARM-2023KPT001395

PATIENT

DRUGS (12)
  1. XPOVIO [Suspect]
     Active Substance: SELINEXOR
     Indication: Plasma cell myeloma
     Dosage: 80 MG, WEEKLY
     Route: 048
     Dates: start: 202305
  2. ACYCLOVIR SODIUM [Concomitant]
     Active Substance: ACYCLOVIR SODIUM
  3. VELCADE [Concomitant]
     Active Substance: BORTEZOMIB
  4. DEXAMETHASONE [Concomitant]
     Active Substance: DEXAMETHASONE
  5. ESTRADIOL [Concomitant]
     Active Substance: ESTRADIOL
  6. FOLIC ACID [Concomitant]
     Active Substance: FOLIC ACID
  7. LORAZEPAM [Concomitant]
     Active Substance: LORAZEPAM
  8. OLANZAPINE [Concomitant]
     Active Substance: OLANZAPINE
  9. VARUBI [ROLAPITANT] [Concomitant]
  10. SUMATRIPTAN [Concomitant]
     Active Substance: SUMATRIPTAN
  11. RETIN-A [Concomitant]
     Active Substance: TRETINOIN
  12. ZOLPIDEM [Concomitant]
     Active Substance: ZOLPIDEM TARTRATE

REACTIONS (1)
  - Anosmia [Unknown]

NARRATIVE: CASE EVENT DATE: 20230501
